FAERS Safety Report 9020728 (Version 1)
Quarter: 2013Q1

REPORT INFORMATION
  Report Type: Spontaneous
  Country: US (occurrence: US)
  Receive Date: 20130119
  Receipt Date: 20130119
  Transmission Date: 20140127
  Serious: No
  Sender: FDA-Public Use
  Company Number: US-ALLERGAN-1204925US

PATIENT
  Sex: Female

DRUGS (2)
  1. BOTOX COSMETIC [Suspect]
     Indication: SKIN WRINKLING
     Dosage: 1.2 UNITS, SINGLE
     Route: 030
     Dates: start: 20111123, end: 20111123
  2. BOTOX COSMETIC [Suspect]
     Dosage: 10 UNITS, SINGLE
     Route: 030
     Dates: start: 20111116, end: 20111116

REACTIONS (2)
  - Urinary incontinence [Recovered/Resolved]
  - Pruritus [Recovered/Resolved]
